FAERS Safety Report 6979679-6 (Version None)
Quarter: 2010Q3

REPORT INFORMATION
  Report Type: 
  Country: None (occurrence: None)
  Receive Date: 20100908
  Receipt Date: 20100825
  Transmission Date: 20110219
  Serious: Yes (Death)
  Sender: FDA-Public Use
  Company Number: A-CH2010-39148

PATIENT
  Age: 71 Year
  Sex: Female
  Weight: 60 kg

DRUGS (17)
  1. TRACLEER [Suspect]
     Indication: PULMONARY ARTERIAL HYPERTENSION
     Dosage: 62.5 MG, BID, ORAL
     Route: 048
     Dates: start: 20100716, end: 20100817
  2. BERAPROST SODIUM (BERAPROST SODIUM) [Concomitant]
  3. SILDENAFIL CITRATE [Concomitant]
  4. LANSOPRAZOLE [Concomitant]
  5. SENNOSIDE (SENNOSIDE A+B CALCIUM) [Concomitant]
  6. ZOLPIDEM TARTRATE [Concomitant]
  7. INDOMETHACIN [Concomitant]
  8. EPRAZINONE HYDROCHLORIDE (EPRAZINONE HYDROCHLORIDE) [Concomitant]
  9. POTASSIUM GLUCONATE TAB [Concomitant]
  10. ACETAMINOPHEN [Concomitant]
  11. LOXOPROFEN SODIUM (LOXOPROFEN SODIUM) [Concomitant]
  12. FELBINAC (FELBINAC) [Concomitant]
  13. ESTAZOLAM [Concomitant]
  14. FUROSEMIDE [Concomitant]
  15. DOBUTAMINE HCL [Concomitant]
  16. DOPAMINE HCL [Concomitant]
  17. SACCHARATED IRON OXIDE (SACCHARATED IRON OXIDE) [Concomitant]

REACTIONS (2)
  - CARDIAC FAILURE CONGESTIVE [None]
  - VENTRICULAR FAILURE [None]
